FAERS Safety Report 11655435 (Version 1)
Quarter: 2015Q4

REPORT INFORMATION
  Report Type: Spontaneous
  Country: US (occurrence: US)
  Receive Date: 20151023
  Receipt Date: 20151023
  Transmission Date: 20160304
  Serious: Yes (Other)
  Sender: FDA-Public Use
  Company Number: US-BAYER-2015-446430

PATIENT

DRUGS (2)
  1. CIPRO [Suspect]
     Active Substance: CIPROFLOXACIN HYDROCHLORIDE
     Indication: CELLULITIS
     Dosage: 500 MG, TID
     Dates: start: 20111030
  2. CIPRO [Suspect]
     Active Substance: CIPROFLOXACIN HYDROCHLORIDE
     Indication: TENOSYNOVITIS

REACTIONS (6)
  - Arthralgia [None]
  - Arthropathy [None]
  - Musculoskeletal pain [None]
  - Upper extremity mass [None]
  - Musculoskeletal discomfort [None]
  - Musculoskeletal pain [None]

NARRATIVE: CASE EVENT DATE: 20111104
